FAERS Safety Report 21063906 (Version 1)
Quarter: 2022Q3

REPORT INFORMATION
  Report Type: Spontaneous
  Country: US (occurrence: None)
  Receive Date: 20220710
  Receipt Date: 20220710
  Transmission Date: 20221027
  Serious: Yes (Other)
  Sender: FDA-Public Use
  Company Number: None

PATIENT
  Age: 28 Year
  Sex: Female
  Weight: 90.7 kg

DRUGS (1)
  1. PAXLOVID [Suspect]
     Active Substance: NIRMATRELVIR\RITONAVIR
     Dates: start: 20220629, end: 20220701

REACTIONS (7)
  - Pain in extremity [None]
  - Paraesthesia [None]
  - Paraesthesia [None]
  - Pain [None]
  - Hypoaesthesia [None]
  - Pain in extremity [None]
  - Hypoaesthesia [None]

NARRATIVE: CASE EVENT DATE: 20220630
